FAERS Safety Report 10534581 (Version 2)
Quarter: 2014Q4

REPORT INFORMATION
  Report Type: Spontaneous
  Country: CH (occurrence: CH)
  Receive Date: 20141022
  Receipt Date: 20141029
  Transmission Date: 20150529
  Serious: Yes (Hospitalization, Other)
  Sender: FDA-Public Use
  Company Number: CH-TEVA-515640ISR

PATIENT
  Age: 61 Year
  Sex: Female

DRUGS (10)
  1. PANTOZOL 40 MG [Concomitant]
     Dosage: 40 MILLIGRAM DAILY; 0-0-1
     Route: 065
  2. SAROTEN 25 MG [Concomitant]
     Dosage: 50 MILLIGRAM DAILY; 0-0-2
     Route: 065
  3. MAGNESIUM [Concomitant]
     Active Substance: MAGNESIUM
     Dosage: 1 DOSAGE FORMS DAILY; 1-0-0
     Route: 065
  4. DE-URSIL 400 MG [Concomitant]
     Dosage: 400 MILLIGRAM DAILY; 0-0-1
     Route: 065
  5. COPAXONE [Suspect]
     Active Substance: GLATIRAMER ACETATE
     Indication: MULTIPLE SCLEROSIS
     Dosage: 20 MILLIGRAM DAILY;
     Route: 058
     Dates: start: 2006, end: 20141011
  6. TENORMIN MITE 50 MG [Concomitant]
     Dosage: 100 MILLIGRAM DAILY; 1-0-1
     Route: 065
  7. CALCIUM SANDOZ [Concomitant]
     Active Substance: CALCIUM
     Dosage: 1 DOSAGE FORMS DAILY; 1-0-0
     Route: 065
  8. DAFALGAN [Concomitant]
     Active Substance: ACETAMINOPHEN
     Dosage: 4 GRAM DAILY; 1-1-1-1
  9. TEMESTA 2.5 MG [Concomitant]
     Dosage: 3.75 MILLIGRAM DAILY; 1-0.5-0
     Route: 065
  10. BECOZYME FORTE [Concomitant]
     Dosage: 2 DOSAGE FORMS DAILY; 1-1-0
     Route: 065

REACTIONS (5)
  - Purpura [Not Recovered/Not Resolved]
  - Embolia cutis medicamentosa [Not Recovered/Not Resolved]
  - Fluid retention [Not Recovered/Not Resolved]
  - Injection site hypersensitivity [Not Recovered/Not Resolved]
  - Necrosis [Not Recovered/Not Resolved]

NARRATIVE: CASE EVENT DATE: 20141011
